FAERS Safety Report 14652320 (Version 1)
Quarter: 2018Q1

REPORT INFORMATION
  Report Type: Spontaneous
  Country: US (occurrence: US)
  Receive Date: 20180318
  Receipt Date: 20180318
  Transmission Date: 20180509
  Serious: No
  Sender: FDA-Public Use
  Company Number: US-JNJFOC-20180304313

PATIENT
  Sex: Male

DRUGS (3)
  1. CHILDRENS TYLENOL [Suspect]
     Active Substance: ACETAMINOPHEN
     Indication: SINUS CONGESTION
     Route: 048
  2. CHILDREN^S ZYRTEC BUBBLEGUM SYRUP [Concomitant]
     Indication: MULTIPLE ALLERGIES
     Route: 065
     Dates: end: 20180223
  3. CHILDREN^S ZYRTEC BUBBLEGUM SYRUP [Concomitant]
     Indication: SINUS CONGESTION
     Route: 065
     Dates: end: 20180223

REACTIONS (1)
  - Product use in unapproved indication [Unknown]
